FAERS Safety Report 5116228-1 (Version None)
Quarter: 2006Q3

REPORT INFORMATION
  Report Type: 
  Country: None (occurrence: None)
  Receive Date: 20060927
  Receipt Date: 20060926
  Transmission Date: 20061208
  Serious: Yes (Other)
  Sender: FDA-Public Use
  Company Number: US-GLAXOSMITHKLINE-A0621382A

PATIENT
  Sex: Male

DRUGS (2)
  1. AVODART [Suspect]
     Indication: DRUG USE FOR UNKNOWN INDICATION
     Route: 048
     Dates: start: 20060711
  2. NO CONCURRENT MEDICATIONS [Concomitant]

REACTIONS (6)
  - AGGRESSION [None]
  - ANGER [None]
  - DEPRESSION [None]
  - EJACULATION FAILURE [None]
  - ERECTILE DYSFUNCTION [None]
  - MARITAL PROBLEM [None]
